FAERS Safety Report 6296231-9 (Version None)
Quarter: 2009Q3

REPORT INFORMATION
  Report Type: 
  Country: None (occurrence: None)
  Receive Date: 20090804
  Receipt Date: 20090723
  Transmission Date: 20100115
  Serious: Yes (Death, Hospitalization)
  Sender: FDA-Public Use
  Company Number: US-PFIZER INC-2009233977

PATIENT
  Sex: Female
  Weight: 50.794 kg

DRUGS (10)
  1. VFEND [Suspect]
     Indication: BLASTOMYCOSIS
     Dosage: 200 MG, 1X/DAY
     Dates: start: 20080107
  2. XANAX [Suspect]
     Dosage: 0.5 MG, AS NEEDED
  3. COMBIVENT [Concomitant]
  4. MOBIC [Concomitant]
     Dates: start: 20080101, end: 20090601
  5. LEXAPRO [Concomitant]
     Dates: start: 20080201
  6. TIMOLOL MALEATE [Concomitant]
     Dates: start: 20080201
  7. PREDNISONE [Concomitant]
     Dates: start: 20080301
  8. ULTRACET [Concomitant]
     Dates: start: 20080301
  9. ACTONEL [Concomitant]
     Dates: start: 20090101
  10. FLEXERIL [Concomitant]
     Dates: start: 20080401

REACTIONS (5)
  - RENAL FAILURE [None]
  - RESPIRATORY FAILURE [None]
  - SEPSIS [None]
  - SHOCK [None]
  - UNRESPONSIVE TO STIMULI [None]
